FAERS Safety Report 5702706-0 (Version None)
Quarter: 2008Q2

REPORT INFORMATION
  Report Type: 
  Country: None (occurrence: None)
  Receive Date: 20080411
  Receipt Date: 20080404
  Transmission Date: 20081010
  Serious: Yes (Other)
  Sender: FDA-Public Use
  Company Number: A0719384A

PATIENT
  Age: 18 Year
  Sex: Female

DRUGS (6)
  1. LAMICTAL [Suspect]
     Indication: BIPOLAR DISORDER
     Dosage: 200MG AT NIGHT
     Route: 048
     Dates: start: 20051101, end: 20080401
  2. SYNTHROID [Suspect]
     Indication: HYPERTHYROIDISM
     Dosage: .1MG PER DAY
     Route: 048
     Dates: start: 20080101, end: 20080301
  3. ABILIFY [Concomitant]
  4. CELEXA [Concomitant]
  5. LOPID [Concomitant]
  6. KLONOPIN [Concomitant]

REACTIONS (4)
  - DERMATITIS EXFOLIATIVE [None]
  - ECZEMA [None]
  - INFECTION [None]
  - MEDICATION ERROR [None]
